FAERS Safety Report 19303962 (Version 1)
Quarter: 2021Q2

REPORT INFORMATION
  Report Type: Spontaneous
  Country: TW (occurrence: TW)
  Receive Date: 20210525
  Receipt Date: 20210525
  Transmission Date: 20210717
  Serious: Yes (Death, Other)
  Sender: FDA-Public Use
  Company Number: TW-SA-2021SA172962

PATIENT
  Age: 57 Year
  Sex: Male

DRUGS (1)
  1. MYOZYME [Suspect]
     Active Substance: ALGLUCOSIDASE ALFA
     Dosage: 16VIALS (50MG/VIAL), QOW
     Route: 042
     Dates: end: 20210503

REACTIONS (3)
  - Hypoxia [Fatal]
  - Productive cough [Fatal]
  - Choking [Fatal]
